FAERS Safety Report 8667504 (Version 2)
Quarter: 2012Q4

REPORT INFORMATION
  Report Type: Spontaneous
  Country: US (occurrence: None)
  Receive Date: 20120222
  Receipt Date: 20120814
  Transmission Date: 20130627
  Serious: Yes (Other)
  Sender: FDA-Public Use
  Company Number: 2012-00197

PATIENT
  Age: 4 Decade
  Sex: Female

DRUGS (1)
  1. SUPRAX [Suspect]
     Indication: PRODUCT USED FOR UNKNOWN INDICATION
     Dosage: 400 MG (400 MG, 1 IN 1 D), PER ORAL
     Route: 048
     Dates: start: 20120209, end: 20120210

REACTIONS (4)
  - SWOLLEN TONGUE [None]
  - THROAT TIGHTNESS [None]
  - URTICARIA [None]
  - LIP SWELLING [None]
